FAERS Safety Report 21911155 (Version 1)
Quarter: 2023Q1

REPORT INFORMATION
  Report Type: Spontaneous
  Country: US (occurrence: None)
  Receive Date: 20230125
  Receipt Date: 20230125
  Transmission Date: 20230418
  Serious: Yes (Other)
  Sender: FDA-Public Use
  Company Number: None

PATIENT
  Age: 22 Year
  Sex: Male

DRUGS (1)
  1. SERTRALINE HYDROCHLORIDE [Suspect]
     Active Substance: SERTRALINE HYDROCHLORIDE
     Dates: start: 20220819, end: 20220822

REACTIONS (3)
  - Sexual dysfunction [None]
  - Genital hypoaesthesia [None]
  - Orgasm abnormal [None]

NARRATIVE: CASE EVENT DATE: 20220822
